FAERS Safety Report 7806366-4 (Version None)
Quarter: 2011Q4

REPORT INFORMATION
  Report Type: 
  Country: None (occurrence: None)
  Receive Date: 20111011
  Receipt Date: 20111005
  Transmission Date: 20120403
  Serious: Yes (Hospitalization, Other)
  Sender: FDA-Public Use
  Company Number: US-SHIRE-ALL1-2011-02709

PATIENT
  Sex: Male
  Weight: 25 kg

DRUGS (1)
  1. ELAPRASE [Suspect]
     Indication: MUCOPOLYSACCHARIDOSIS II
     Dosage: 12 MG, 1X/WEEK (2 VIALS)
     Route: 041
     Dates: start: 20110324

REACTIONS (6)
  - PRODUCTIVE COUGH [None]
  - FEBRILE CONVULSION [None]
  - PNEUMONIA ASPIRATION [None]
  - PYREXIA [None]
  - TACHYPNOEA [None]
  - TACHYCARDIA [None]
